FAERS Safety Report 4860007-7 (Version None)
Quarter: 2005Q4

REPORT INFORMATION
  Report Type: 
  Country: None (occurrence: None)
  Receive Date: 20051219
  Receipt Date: 20051207
  Transmission Date: 20060501
  Serious: Yes (Hospitalization)
  Sender: FDA-Public Use
  Company Number: FR-ABBOTT-05P-056-0319102-00

PATIENT
  Age: 37 Year
  Sex: Female

DRUGS (4)
  1. HUMIRA [Suspect]
     Indication: POLYARTHRITIS
     Route: 058
     Dates: start: 20050415, end: 20051017
  2. CYPROTERONE ACETATE [Suspect]
     Indication: ENDOMETRIOSIS
     Route: 048
  3. ESTRADIOL ANYDRE [Concomitant]
     Indication: ENDOMETRIOSIS
     Route: 048
  4. PREDNISONE TAB [Concomitant]
     Indication: DRUG USE FOR UNKNOWN INDICATION
     Dates: end: 20051012

REACTIONS (4)
  - ECZEMA [None]
  - RASH [None]
  - SKIN DISORDER [None]
  - WEIGHT INCREASED [None]
